FAERS Safety Report 5483519-4 (Version None)
Quarter: 2007Q4

REPORT INFORMATION
  Report Type: 
  Country: None (occurrence: None)
  Receive Date: 20071009
  Receipt Date: 20070924
  Transmission Date: 20080405
  Serious: Yes (Other)
  Sender: FDA-Public Use
  Company Number: SPI200700672

PATIENT
  Sex: 0

DRUGS (1)
  1. AMITIZA [Suspect]
     Indication: CONSTIPATION
     Dosage: 24 MG, ORAL
     Route: 048

REACTIONS (1)
  - SMALL INTESTINAL OBSTRUCTION [None]
